FAERS Safety Report 8466477-X (Version None)
Quarter: 2012Q2

REPORT INFORMATION
  Report Type: 
  Country: None (occurrence: None)
  Receive Date: 20120626
  Receipt Date: 20120621
  Transmission Date: 20120825
  Serious: Yes (Other)
  Sender: FDA-Public Use
  Company Number: PHHY2012BR053733

PATIENT
  Age: 76 Year

DRUGS (2)
  1. EXELON [Concomitant]
     Indication: DEMENTIA ALZHEIMER'S TYPE
     Dosage: 1 DF, QD
  2. ENALAPRIL MALEATE [Suspect]
     Indication: OFF LABEL USE
     Dosage: 1 DF, BID
     Route: 048
     Dates: start: 19960101

REACTIONS (1)
  - DIABETES MELLITUS [None]
